FAERS Safety Report 7787572-4 (Version None)
Quarter: 2011Q3

REPORT INFORMATION
  Report Type: 
  Country: None (occurrence: None)
  Receive Date: 20110929
  Receipt Date: 20110920
  Transmission Date: 20111222
  Serious: Yes (Hospitalization)
  Sender: FDA-Public Use
  Company Number: US-US-EMD SERONO, INC.-7080549

PATIENT
  Sex: Male
  Weight: 114 kg

DRUGS (11)
  1. HYDROCHLOROTHIAZIDE [Concomitant]
  2. COLACE [Concomitant]
  3. POTASSIUM [Concomitant]
  4. COREG [Concomitant]
  5. REBIF [Suspect]
     Indication: MULTIPLE SCLEROSIS
     Route: 058
     Dates: start: 20101006
  6. COUMADIN [Suspect]
  7. BACLOFEN [Suspect]
  8. VITAMIN D [Concomitant]
  9. OMEPRAZOLE [Concomitant]
  10. CAPTOPRIL [Concomitant]
  11. DECADRON [Concomitant]

REACTIONS (7)
  - VOMITING [None]
  - GASTROINTESTINAL HAEMORRHAGE [None]
  - NAUSEA [None]
  - GASTRIC ULCER HAEMORRHAGE [None]
  - DEMENTIA [None]
  - MULTIPLE SCLEROSIS [None]
  - DEHYDRATION [None]
